FAERS Safety Report 8426844-7 (Version None)
Quarter: 2012Q2

REPORT INFORMATION
  Report Type: 
  Country: None (occurrence: None)
  Receive Date: 20120611
  Receipt Date: 20120608
  Transmission Date: 20120825
  Serious: Yes (Death, Hospitalization)
  Sender: FDA-Public Use
  Company Number: ES-B.I. PHARMACEUTICALS,INC./RIDGEFIELD-2012-ES-00222ES

PATIENT
  Age: 83 Year
  Sex: Female

DRUGS (8)
  1. PRADAXA [Suspect]
     Indication: ATRIAL FIBRILLATION
     Dosage: 220 MG
     Route: 048
     Dates: start: 20120403, end: 20120429
  2. CARVEDILOL [Concomitant]
  3. ASPIRIN [Concomitant]
  4. OMEPRAZOLE [Concomitant]
  5. VALSARTAN [Concomitant]
  6. FERROUS SULFATE TAB [Concomitant]
  7. OPTOVITE B12 [Concomitant]
  8. LORAZEPAM [Concomitant]

REACTIONS (4)
  - HAEMATOCHEZIA [None]
  - DEATH [None]
  - LARGE INTESTINAL HAEMORRHAGE [None]
  - GASTROINTESTINAL HAEMORRHAGE [None]
